FAERS Safety Report 8333119 (Version 5)
Quarter: 2012Q4

REPORT INFORMATION
  Report Type: 
  Country: ES (occurrence: ES)
  Receive Date: 20120112
  Receipt Date: 20121121
  Transmission Date: 20130627
  Serious: Yes (Hospitalization, Other)
  Sender: FDA-Public Use
  Company Number: ES-AMGEN-ESPSP2012001851

PATIENT
  Age: 73 Year
  Sex: Female
  Weight: 70 kg

DRUGS (5)
  1. NPLATE [Suspect]
     Indication: IDIOPATHIC THROMBOCYTOPENIC PURPURA
     Dosage: .10 ml, qwk
     Route: 058
     Dates: start: 20110601
  2. SINTROM [Concomitant]
  3. MIDAZOLAM [Concomitant]
     Dosage: UNK
     Dates: start: 20120826, end: 20120828
  4. FENTANIL [Concomitant]
     Dosage: UNK
     Dates: start: 20120826, end: 20120828
  5. PROFOL                             /00700101/ [Concomitant]
     Dosage: UNK
     Dates: start: 20120826

REACTIONS (7)
  - Pulmonary embolism [Recovered/Resolved]
  - Thrombosis [Recovering/Resolving]
  - Cardio-respiratory arrest [Unknown]
  - Anaemia [Unknown]
  - Pancytopenia [Unknown]
  - Pelvic mass [Unknown]
  - Thyroid neoplasm [Unknown]
